FAERS Safety Report 16449503 (Version 1)
Quarter: 2019Q2

REPORT INFORMATION
  Report Type: Spontaneous
  Country: US (occurrence: US)
  Receive Date: 20190619
  Receipt Date: 20190619
  Transmission Date: 20190711
  Serious: No
  Sender: FDA-Public Use
  Company Number: US-ROCHE-2268558

PATIENT

DRUGS (3)
  1. ACTEMRA [Suspect]
     Active Substance: TOCILIZUMAB
     Indication: RHEUMATOID ARTHRITIS
     Route: 065
     Dates: start: 201506, end: 201511
  2. XELJANZ XR [Concomitant]
     Active Substance: TOFACITINIB CITRATE
     Route: 048
  3. ENBREL [Concomitant]
     Active Substance: ETANERCEPT
     Dosage: DID NOT WORK
     Route: 065

REACTIONS (2)
  - Drug ineffective [Unknown]
  - No adverse event [Unknown]
